FAERS Safety Report 23869277 (Version 1)
Quarter: 2024Q2

REPORT INFORMATION
  Report Type: Spontaneous
  Country: JP (occurrence: None)
  Receive Date: 20240517
  Receipt Date: 20240517
  Transmission Date: 20240715
  Serious: Yes (Other)
  Sender: FDA-Public Use
  Company Number: 2024A111230

PATIENT
  Age: 89 Year
  Sex: Female

DRUGS (12)
  1. OSIMERTINIB [Suspect]
     Active Substance: OSIMERTINIB
     Indication: Lung adenocarcinoma recurrent
     Route: 048
  2. OSIMERTINIB [Suspect]
     Active Substance: OSIMERTINIB
     Indication: EGFR gene mutation
     Route: 048
  3. OSIMERTINIB [Suspect]
     Active Substance: OSIMERTINIB
     Indication: EGFR gene mutation
     Route: 048
  4. OSIMERTINIB [Suspect]
     Active Substance: OSIMERTINIB
     Indication: Lung adenocarcinoma recurrent
     Dosage: 40 MG/DAY (ADMINISTERED FOR 2 WEEKS, FOLLOWED BY A 1-WEEK REST PERIOD
     Route: 048
  5. OSIMERTINIB [Suspect]
     Active Substance: OSIMERTINIB
     Indication: EGFR gene mutation
     Dosage: 40 MG/DAY (ADMINISTERED FOR 2 WEEKS, FOLLOWED BY A 1-WEEK REST PERIOD
     Route: 048
  6. OSIMERTINIB [Suspect]
     Active Substance: OSIMERTINIB
     Indication: EGFR gene mutation
     Dosage: 40 MG/DAY (ADMINISTERED FOR 2 WEEKS, FOLLOWED BY A 1-WEEK REST PERIOD
     Route: 048
  7. OSIMERTINIB [Suspect]
     Active Substance: OSIMERTINIB
     Indication: Lung adenocarcinoma recurrent
     Route: 048
  8. OSIMERTINIB [Suspect]
     Active Substance: OSIMERTINIB
     Indication: EGFR gene mutation
     Route: 048
  9. OSIMERTINIB [Suspect]
     Active Substance: OSIMERTINIB
     Indication: EGFR gene mutation
     Route: 048
  10. OSIMERTINIB [Suspect]
     Active Substance: OSIMERTINIB
     Indication: Lung adenocarcinoma recurrent
     Dosage: 40 MG/DAY (ADMINISTERED FOR 2 WEEKS, FOLLOWED BY A 1-WEEK REST PERIOD
     Route: 048
  11. OSIMERTINIB [Suspect]
     Active Substance: OSIMERTINIB
     Indication: EGFR gene mutation
     Dosage: 40 MG/DAY (ADMINISTERED FOR 2 WEEKS, FOLLOWED BY A 1-WEEK REST PERIOD
     Route: 048
  12. OSIMERTINIB [Suspect]
     Active Substance: OSIMERTINIB
     Indication: EGFR gene mutation
     Dosage: 40 MG/DAY (ADMINISTERED FOR 2 WEEKS, FOLLOWED BY A 1-WEEK REST PERIOD
     Route: 048

REACTIONS (3)
  - Thrombocytopenia [Unknown]
  - Organising pneumonia [Unknown]
  - Pulmonary tuberculosis [Unknown]
